FAERS Safety Report 9471310 (Version 2)
Quarter: 2013Q4

REPORT INFORMATION
  Report Type: Spontaneous
  Country: AU (occurrence: AU)
  Receive Date: 20130822
  Receipt Date: 20131119
  Transmission Date: 20140711
  Serious: Yes (Other)
  Sender: FDA-Public Use
  Company Number: AU-009507513-1308AUS007369

PATIENT
  Sex: 0

DRUGS (1)
  1. VICTRELIS 200 MG [Suspect]
     Dosage: UNK
     Route: 048

REACTIONS (3)
  - Abscess limb [Recovered/Resolved]
  - Hepatic cirrhosis [Unknown]
  - Drain removal [Unknown]
